FAERS Safety Report 6502739-0 (Version None)
Quarter: 2009Q4

REPORT INFORMATION
  Report Type: 
  Country: None (occurrence: None)
  Receive Date: 20091217
  Receipt Date: 20091207
  Transmission Date: 20100525
  Serious: Yes (Other)
  Sender: FDA-Public Use
  Company Number: MW-BRISTOL-MYERS SQUIBB COMPANY-14885958

PATIENT
  Age: 58 Year
  Sex: Female
  Weight: 34 kg

DRUGS (3)
  1. STAVUDINE [Suspect]
     Indication: HIV INFECTION
  2. LAMIVUDINE [Suspect]
     Indication: HIV INFECTION
  3. NEVIRAPINE [Suspect]
     Indication: HIV INFECTION

REACTIONS (5)
  - DIABETES MELLITUS [None]
  - HYPERLACTACIDAEMIA [None]
  - HYPERLIPIDAEMIA [None]
  - LIPOATROPHY [None]
  - NEUROPATHY PERIPHERAL [None]
